FAERS Safety Report 9968447 (Version 1)
Quarter: 2014Q1

REPORT INFORMATION
  Report Type: Spontaneous
  Country: US (occurrence: US)
  Receive Date: 20140306
  Receipt Date: 20140306
  Transmission Date: 20141002
  Serious: No
  Sender: FDA-Public Use
  Company Number: US-ABBVIE-13P-163-1145780-00

PATIENT
  Age: 77 Year
  Sex: Female
  Weight: 61.29 kg

DRUGS (8)
  1. HUMIRA [Suspect]
     Indication: RHEUMATOID ARTHRITIS
     Dates: start: 201205
  2. METHOTREXATE [Concomitant]
     Indication: RHEUMATOID ARTHRITIS
  3. NAPROXEN [Concomitant]
     Indication: RHEUMATOID ARTHRITIS
  4. MEGA RED [Concomitant]
     Indication: SUPPLEMENTATION THERAPY
  5. VITAMIN B 12 [Concomitant]
     Indication: SUPPLEMENTATION THERAPY
  6. OMEPRAZOLE [Concomitant]
     Indication: GASTRIC DISORDER
  7. FOLIC ACID [Concomitant]
     Indication: VITAMIN SUPPLEMENTATION
  8. LISINOPRIL [Concomitant]
     Indication: HYPERTENSION

REACTIONS (2)
  - Vaginal lesion [Not Recovered/Not Resolved]
  - Herpes virus infection [Not Recovered/Not Resolved]
